FAERS Safety Report 4299578-0 (Version None)
Quarter: 2004Q1

REPORT INFORMATION
  Report Type: 
  Country: None (occurrence: None)
  Receive Date: 20040201
  Receipt Date: 20040206
  Transmission Date: 20041129
  Serious: Yes (Hospitalization)
  Sender: FDA-Public Use
  Company Number: 03P-056-0244167-00

PATIENT
  Age: 68 Year
  Sex: Male

DRUGS (6)
  1. BIAXIN [Suspect]
     Indication: NASOPHARYNGITIS
     Dosage: 1 IN 1 D, PER ORAL
     Route: 048
     Dates: start: 20031113, end: 20031118
  2. PANTOPRAZOLE (PANTOPRAZOLE) (PANTOPRAZOLE) [Suspect]
     Indication: NASOPHARYNGITIS
     Dosage: PER ORAL
     Route: 048
     Dates: start: 20031113, end: 20031118
  3. PREDNAZOLINE [Suspect]
     Indication: NASOPHARYNGITIS
     Dosage: INHALATION
     Dates: start: 20031113, end: 20031118
  4. TIAPROFENIC ACID [Suspect]
     Indication: NASOPHARYNGITIS
     Dosage: PER ORAL
     Route: 048
     Dates: start: 20031113, end: 20031118
  5. AMBROXOL [Suspect]
     Indication: NASOPHARYNGITIS
     Dosage: PER ORAL
     Route: 048
     Dates: start: 20031113, end: 20031118
  6. ATORVASTATIN [Concomitant]

REACTIONS (7)
  - ASPARTATE AMINOTRANSFERASE INCREASED [None]
  - BLOOD CREATINE PHOSPHOKINASE INCREASED [None]
  - CHILLS [None]
  - HAEMOLYTIC ANAEMIA [None]
  - MYOGLOBIN BLOOD INCREASED [None]
  - PYREXIA [None]
  - RENAL FAILURE [None]
